FAERS Safety Report 5945690-7 (Version None)
Quarter: 2008Q4

REPORT INFORMATION
  Report Type: 
  Country: None (occurrence: None)
  Receive Date: 20081107
  Receipt Date: 20081027
  Transmission Date: 20090506
  Serious: Yes (Death)
  Sender: FDA-Public Use
  Company Number: US-GENENTECH-270239

PATIENT
  Sex: Male
  Weight: 88.435 kg

DRUGS (2)
  1. RAPTIVA [Suspect]
     Indication: DRUG USE FOR UNKNOWN INDICATION
     Dosage: 0.6 UNK, SINGLE
     Dates: start: 20040407
  2. RAPTIVA [Suspect]
     Dosage: 0.9 UNK, 1/WEEK
     Dates: end: 20071017

REACTIONS (1)
  - ADRENAL INSUFFICIENCY [None]
